FAERS Safety Report 5109597-X (Version None)
Quarter: 2006Q3

REPORT INFORMATION
  Report Type: 
  Country: None (occurrence: None)
  Receive Date: 20060918
  Receipt Date: 20060828
  Transmission Date: 20061208
  Serious: Yes (Other)
  Sender: FDA-Public Use
  Company Number: JP200608006134

PATIENT
  Age: 66 Year
  Sex: Male
  Weight: 79.7 kg

DRUGS (5)
  1. LISPRO (LISPRO 50LIS50NPL) PEN, DISPOSABLE [Suspect]
     Indication: DIABETES MELLITUS NON-INSULIN-DEPENDENT
     Dosage: SEE IMAGE
     Dates: start: 20051102, end: 20060304
  2. HUMALOG 50NPL / 50 PEN (HUMALOG 50NPL / 50L PEN) PEN,DISPOSABLE [Concomitant]
  3. METFORMIN HCL [Concomitant]
  4. BASEN (VOGLIBOSE) TABLET [Concomitant]
  5. BAYASPIRIN (ACETYLSALICYLIC ACID) TABLET [Concomitant]

REACTIONS (1)
  - CEREBRAL INFARCTION [None]
